FAERS Safety Report 7077054-X (Version None)
Quarter: 2010Q4

REPORT INFORMATION
  Report Type: 
  Country: None (occurrence: None)
  Receive Date: 20101101
  Receipt Date: 20101021
  Transmission Date: 20110411
  Serious: Yes (Hospitalization, Other)
  Sender: FDA-Public Use
  Company Number: US-JNJFOC-20101006166

PATIENT
  Sex: Female
  Weight: 131.54 kg

DRUGS (3)
  1. REMICADE [Suspect]
     Indication: CROHN'S DISEASE
     Dosage: STOPPED AFTER 3RD INFUSION
     Route: 042
  2. REMICADE [Suspect]
     Dosage: STOPPED AFTER 3RD INFUSION
     Route: 042
  3. STEROIDS NOS [Suspect]
     Indication: ILL-DEFINED DISORDER

REACTIONS (7)
  - ASTHMA [None]
  - BURNING SENSATION [None]
  - DIABETES MELLITUS [None]
  - INFLUENZA LIKE ILLNESS [None]
  - JOINT LOCK [None]
  - PRURITUS [None]
  - TRISMUS [None]
